FAERS Safety Report 4943437-4 (Version None)
Quarter: 2006Q1

REPORT INFORMATION
  Report Type: 
  Country: None (occurrence: None)
  Receive Date: 20060313
  Receipt Date: 20060313
  Transmission Date: 20060701
  Serious: Yes (Death)
  Sender: FDA-Public Use
  Company Number: None

PATIENT
  Sex: Female

DRUGS (1)
  1. TORSEMIDE 20 MG [Suspect]
     Indication: FLUID RETENTION
     Dosage: 20 MG BID PO
     Route: 048
     Dates: start: 20051127

REACTIONS (5)
  - ERYTHEMA [None]
  - FLUID RETENTION [None]
  - POST PROCEDURAL COMPLICATION [None]
  - STEVENS-JOHNSON SYNDROME [None]
  - TOXIC EPIDERMAL NECROLYSIS [None]
